FAERS Safety Report 8405613-8 (Version None)
Quarter: 2012Q2

REPORT INFORMATION
  Report Type: 
  Country: None (occurrence: None)
  Receive Date: 20120604
  Receipt Date: 20120529
  Transmission Date: 20120825
  Serious: No
  Sender: FDA-Public Use
  Company Number: US-BIOGENIDEC-2012BI018993

PATIENT
  Age: 49 Year
  Sex: Female

DRUGS (1)
  1. TYSABRI [Suspect]
     Indication: MULTIPLE SCLEROSIS
     Route: 042
     Dates: start: 20070102

REACTIONS (9)
  - WRIST FRACTURE [None]
  - PAIN [None]
  - FALL [None]
  - GAIT DISTURBANCE [None]
  - TOOTH INFECTION [None]
  - ASTHENIA [None]
  - EAR INFECTION [None]
  - MYALGIA [None]
  - VISUAL IMPAIRMENT [None]
